FAERS Safety Report 12683258 (Version 2)
Quarter: 2017Q3

REPORT INFORMATION
  Report Type: Spontaneous
  Country: US (occurrence: US)
  Receive Date: 20160825
  Receipt Date: 20170929
  Transmission Date: 20171127
  Serious: Yes (Life-Threatening, Hospitalization, Other)
  Sender: FDA-Public Use
  Company Number: US-AUROBINDO-AUR-APL-2016-10682

PATIENT
  Age: 19 Year
  Sex: Male
  Weight: 62 kg

DRUGS (1)
  1. LIDOCAINE. [Suspect]
     Active Substance: LIDOCAINE
     Indication: ANAESTHESIA
     Dosage: UNK
     Route: 061

REACTIONS (8)
  - Hypotension [Recovered/Resolved]
  - Somnolence [Recovered/Resolved]
  - Fatigue [Recovered/Resolved]
  - Generalised tonic-clonic seizure [Recovered/Resolved]
  - Nausea [Unknown]
  - Toxicity to various agents [Unknown]
  - Bradycardia [Recovered/Resolved]
  - Vomiting [Unknown]
